FAERS Safety Report 5895660-2 (Version None)
Quarter: 2008Q3

REPORT INFORMATION
  Report Type: 
  Country: None (occurrence: None)
  Receive Date: 20080924
  Receipt Date: 20070828
  Transmission Date: 20090109
  Serious: No
  Sender: FDA-Public Use
  Company Number: US-BAYER-200712929BWH

PATIENT
  Age: 27 Year
  Sex: Male

DRUGS (2)
  1. CIPRO [Suspect]
     Indication: PNEUMONIA
     Route: 048
  2. GANI-TUSS-DM NR LIQUID CYP [Suspect]
     Route: 048

REACTIONS (1)
  - DRUG SCREEN POSITIVE [None]
